FAERS Safety Report 23421897 (Version 1)
Quarter: 2024Q1

REPORT INFORMATION
  Report Type: Spontaneous
  Country: None (occurrence: SE)
  Receive Date: 20240119
  Receipt Date: 20240119
  Transmission Date: 20240410
  Serious: Yes (Other)
  Sender: FDA-Public Use
  Company Number: SE-Hill Dermaceuticals, Inc.-2151539

PATIENT
  Age: 75 Year
  Sex: Male

DRUGS (1)
  1. TOLAK [Suspect]
     Active Substance: FLUOROURACIL
     Route: 065
     Dates: end: 20231109

REACTIONS (3)
  - Eyelid oedema [Unknown]
  - Eczema nummular [Unknown]
  - Product administration error [None]

NARRATIVE: CASE EVENT DATE: 20231101
